FAERS Safety Report 8832060 (Version 1)
Quarter: 2012Q4

REPORT INFORMATION
  Report Type: Report from Study
  Country: FR (occurrence: FR)
  Receive Date: 20121009
  Receipt Date: 20121009
  Transmission Date: 20130627
  Serious: Yes (Hospitalization)
  Sender: FDA-Public Use
  Company Number: FR-ROCHE-1137086

PATIENT
  Age: 61 Year
  Sex: Female
  Weight: 84 kg

DRUGS (12)
  1. ROACTEMRA [Suspect]
     Indication: RHEUMATOID ARTHRITIS
     Route: 042
     Dates: start: 20100916
  2. METHOTREXATE [Concomitant]
     Indication: RHEUMATOID ARTHRITIS
     Route: 065
  3. CORTANCYL [Concomitant]
     Indication: RHEUMATOID ARTHRITIS
     Route: 048
  4. DAFALGAN CODEINE [Concomitant]
     Dosage: 2-6 tablets, per day as needed
     Route: 065
  5. SPECIAFOLDINE [Concomitant]
     Route: 065
  6. MOPRAL (FRANCE) [Concomitant]
     Route: 065
  7. ELISOR [Concomitant]
     Route: 065
  8. LODOZ [Concomitant]
     Route: 065
  9. LERCAN [Concomitant]
     Route: 065
  10. INEXIUM [Concomitant]
  11. IXPRIM [Concomitant]
     Route: 065
  12. STILNOX [Concomitant]
     Route: 065

REACTIONS (8)
  - Meniscus removal [Recovered/Resolved]
  - Constipation [Recovered/Resolved]
  - Pertussis [Recovered/Resolved]
  - Nasopharyngitis [Recovered/Resolved]
  - Rhinitis [Recovered/Resolved]
  - Sneezing [Recovered/Resolved]
  - Cough [Recovered/Resolved]
  - Rhinorrhoea [Recovered/Resolved]
